FAERS Safety Report 23157028 (Version 3)
Quarter: 2024Q1

REPORT INFORMATION
  Report Type: Spontaneous
  Country: JP (occurrence: JP)
  Receive Date: 20231108
  Receipt Date: 20240103
  Transmission Date: 20240409
  Serious: Yes (Other)
  Sender: FDA-Public Use
  Company Number: JP-SERVIER-S23012471

PATIENT
  Sex: Male

DRUGS (3)
  1. ONIVYDE [Suspect]
     Active Substance: IRINOTECAN HYDROCHLORIDE
     Indication: Pancreatic carcinoma
     Dosage: UNKNOWN
     Route: 065
  2. FLUOROURACIL [Suspect]
     Active Substance: FLUOROURACIL
     Indication: Pancreatic carcinoma
     Dosage: UNKNOWN
     Route: 065
  3. LEVOLEUCOVORIN CALCIUM [Concomitant]
     Active Substance: LEVOLEUCOVORIN CALCIUM
     Indication: Pancreatic carcinoma
     Dosage: UNKNOWN
     Route: 065

REACTIONS (9)
  - Loss of consciousness [Unknown]
  - Urinary retention [Unknown]
  - Tremor [Unknown]
  - Decreased appetite [Unknown]
  - Language disorder [Unknown]
  - Somnolence [Unknown]
  - Vomiting [Unknown]
  - Face oedema [Unknown]
  - Hyperammonaemia [Unknown]
